FAERS Safety Report 7955095-5 (Version None)
Quarter: 2011Q4

REPORT INFORMATION
  Report Type: 
  Country: None (occurrence: None)
  Receive Date: 20111202
  Receipt Date: 20111130
  Transmission Date: 20120403
  Serious: Yes (Death, Hospitalization, Other)
  Sender: FDA-Public Use
  Company Number: US-AMGEN-USASP2011054800

PATIENT
  Age: 44 Year
  Sex: Female
  Weight: 107.94 kg

DRUGS (9)
  1. DANAZOL [Concomitant]
     Indication: IDIOPATHIC THROMBOCYTOPENIC PURPURA
  2. RANITIDINE [Concomitant]
     Dosage: 150 MG, UNK
     Route: 048
  3. IRON SULFATETHIAMIN COMPOUND TAB [Concomitant]
     Dosage: 325 MG, UNK
  4. PLAQUENIL [Concomitant]
     Dosage: 200 MG, BID
     Route: 048
  5. CELLCEPT [Concomitant]
     Route: 048
  6. LISINOPRIL [Concomitant]
  7. NPLATE [Suspect]
     Indication: IDIOPATHIC THROMBOCYTOPENIC PURPURA
     Dosage: 10 MUG/KG, QWK
     Route: 058
     Dates: start: 20100831, end: 20101103
  8. CELEBREX [Concomitant]
     Dosage: UNK UNK, PRN
  9. PERCOCET [Concomitant]

REACTIONS (8)
  - SYSTEMIC LUPUS ERYTHEMATOSUS [None]
  - EPISTAXIS [None]
  - THERAPEUTIC RESPONSE DECREASED [None]
  - IDIOPATHIC THROMBOCYTOPENIC PURPURA [None]
  - HAEMORRHAGE INTRACRANIAL [None]
  - HAEMATURIA [None]
  - THROMBOCYTOPENIA [None]
  - PHARYNGEAL HAEMORRHAGE [None]
